FAERS Safety Report 11560415 (Version 1)
Quarter: 2015Q3

REPORT INFORMATION
  Report Type: Spontaneous
  Country: FR (occurrence: FR)
  Receive Date: 20150928
  Receipt Date: 20150928
  Transmission Date: 20151125
  Serious: Yes (Hospitalization)
  Sender: FDA-Public Use
  Company Number: FR-PFIZER INC-2015316547

PATIENT
  Age: 30 Year
  Sex: Male

DRUGS (9)
  1. LYSANXIA [Suspect]
     Active Substance: PRAZEPAM
     Dosage: UNK
     Route: 048
     Dates: end: 2015
  2. PAROXETINE [Concomitant]
     Active Substance: PAROXETINE\PAROXETINE HYDROCHLORIDE
     Dosage: 20 MG, 1X/DAY
     Route: 048
     Dates: start: 20150720, end: 20150730
  3. STILNOX [Suspect]
     Active Substance: ZOLPIDEM TARTRATE
     Dosage: UNK
     Route: 048
     Dates: start: 20150731, end: 2015
  4. EFFEXOR [Suspect]
     Active Substance: VENLAFAXINE HYDROCHLORIDE
     Dosage: UNK
     Route: 048
     Dates: start: 20150731, end: 2015
  5. STILNOX [Suspect]
     Active Substance: ZOLPIDEM TARTRATE
     Dosage: 1 BOX
     Route: 048
     Dates: start: 20150810, end: 20150810
  6. LYSANXIA [Suspect]
     Active Substance: PRAZEPAM
     Dosage: 1 BOX
     Route: 048
     Dates: start: 20150810, end: 20150810
  7. STILNOX [Suspect]
     Active Substance: ZOLPIDEM TARTRATE
     Dosage: UNK
     Route: 048
     Dates: start: 20150715, end: 20150720
  8. EFFEXOR [Suspect]
     Active Substance: VENLAFAXINE HYDROCHLORIDE
     Dosage: 1 BOX
     Route: 048
     Dates: start: 20150810, end: 20150810
  9. BROMAZEPAM [Concomitant]
     Active Substance: BROMAZEPAM
     Dosage: UNK
     Route: 048
     Dates: start: 20150720, end: 20150804

REACTIONS (7)
  - Nausea [Recovered/Resolved]
  - Overdose [Recovered/Resolved]
  - Suicidal behaviour [Recovered/Resolved]
  - Abdominal pain upper [Recovered/Resolved]
  - Somnolence [Recovered/Resolved]
  - Serotonin syndrome [Recovered/Resolved]
  - Cerebellar syndrome [Recovered/Resolved]

NARRATIVE: CASE EVENT DATE: 20150810
